FAERS Safety Report 17161060 (Version 1)
Quarter: 2019Q4

REPORT INFORMATION
  Report Type: Spontaneous
  Country: CA (occurrence: CA)
  Receive Date: 20191216
  Receipt Date: 20191216
  Transmission Date: 20200122
  Serious: Yes (Hospitalization, Other)
  Sender: FDA-Public Use
  Company Number: CA-B.BRAUN MEDICAL INC.-2077873

PATIENT
  Age: 64 Year
  Sex: Female

DRUGS (49)
  1. ANTITHYMOCYTE IMMUNOGLOBULIN [Suspect]
     Active Substance: THYMOCYTE IMMUNE GLOBULIN NOS
     Route: 065
  2. ATIVAN [Suspect]
     Active Substance: LORAZEPAM
     Route: 065
  3. NORTRIPTYLINE HYDROCHLORIDE. [Suspect]
     Active Substance: NORTRIPTYLINE HYDROCHLORIDE
     Route: 048
  4. VITAMIN D3 [Suspect]
     Active Substance: CHOLECALCIFEROL
     Route: 065
  5. POTASSIUM CHLORIDE FOR INJECTION CONCENTRATE USP 0264-1940-20 (ANDA 08 [Suspect]
     Active Substance: POTASSIUM CHLORIDE
     Indication: PRODUCT USED FOR UNKNOWN INDICATION
     Route: 042
  6. ALENDRONATE SODIUM. [Suspect]
     Active Substance: ALENDRONATE SODIUM
     Route: 065
  7. BIFIDOBACTERIUM BIFIDUM [Suspect]
     Active Substance: BIFIDOBACTERIUM BIFIDUM
     Route: 065
  8. CALCIUM CARBONATE. [Suspect]
     Active Substance: CALCIUM CARBONATE
     Route: 065
  9. CREATININE [Suspect]
     Active Substance: CREATININE
     Route: 065
  10. CYMBALTA [Suspect]
     Active Substance: DULOXETINE HYDROCHLORIDE
     Route: 048
  11. TRIAMTERENE. [Suspect]
     Active Substance: TRIAMTERENE
     Route: 065
  12. ZOPICLONE [Suspect]
     Active Substance: ZOPICLONE
     Route: 048
  13. FOLIC ACID. [Suspect]
     Active Substance: FOLIC ACID
     Route: 048
  14. LORATADINE. [Suspect]
     Active Substance: LORATADINE
  15. LYRICA [Suspect]
     Active Substance: PREGABALIN
     Route: 065
  16. VITAMIN A [Suspect]
     Active Substance: VITAMIN A
     Route: 048
  17. ACIDOPHILUS [Suspect]
     Active Substance: LACTOBACILLUS ACIDOPHILUS
     Route: 048
  18. BACLOFEN. [Suspect]
     Active Substance: BACLOFEN
     Route: 048
  19. CELLCEPT [Suspect]
     Active Substance: MYCOPHENOLATE MOFETIL\MYCOPHENOLATE MOFETIL HYDROCHLORIDE
     Route: 065
  20. HYDROMORPHONE HCL [Suspect]
     Active Substance: HYDROMORPHONE HYDROCHLORIDE
     Route: 065
  21. LORATADINE. [Suspect]
     Active Substance: LORATADINE
     Route: 065
  22. MELATONIN [Suspect]
     Active Substance: MELATONIN
     Route: 065
  23. SENNA ALEXANDRINA [Suspect]
     Active Substance: SENNA LEAF
     Route: 065
  24. SULFADIAZINE/TRIMETHOPRIM [Suspect]
     Active Substance: SULFAMETHOXAZOLE\TRIMETHOPRIM
     Route: 048
  25. DULOXETINE. [Suspect]
     Active Substance: DULOXETINE
     Route: 048
  26. IMODIUM [Suspect]
     Active Substance: LOPERAMIDE HYDROCHLORIDE
     Route: 065
  27. LORATADINE. [Suspect]
     Active Substance: LORATADINE
     Route: 065
  28. MOMETASONE FUROATE. [Suspect]
     Active Substance: MOMETASONE FUROATE
     Route: 065
  29. SULFAMETHOXAZOLE AND TRIMETHOPRIM [Suspect]
     Active Substance: SULFAMETHOXAZOLE\TRIMETHOPRIM
     Route: 048
  30. VITAMIN A [Suspect]
     Active Substance: VITAMIN A
     Route: 065
  31. CALCIUM [Suspect]
     Active Substance: CALCIUM
     Route: 065
  32. CYMBALTA [Suspect]
     Active Substance: DULOXETINE HYDROCHLORIDE
     Route: 048
  33. DOCUSATE SODIUM. [Suspect]
     Active Substance: DOCUSATE SODIUM
     Route: 065
  34. DULOXETINE. [Suspect]
     Active Substance: DULOXETINE
  35. TIZANIDINE. [Suspect]
     Active Substance: TIZANIDINE
     Route: 048
  36. VITAMIN B12 [Suspect]
     Active Substance: CYANOCOBALAMIN
     Route: 065
  37. VITAMIN C [Suspect]
     Active Substance: ASCORBIC ACID
     Route: 065
  38. CLARITIN ALLERGY + SINUS [Suspect]
     Active Substance: LORATADINE\PSEUDOEPHEDRINE SULFATE
     Route: 065
  39. NOVO-HYDRAZIDE [Suspect]
     Active Substance: HYDROCHLOROTHIAZIDE
     Route: 048
  40. PREDNISONE. [Suspect]
     Active Substance: PREDNISONE
     Route: 065
  41. RANITIDINE. [Suspect]
     Active Substance: RANITIDINE
     Route: 065
  42. SALMO SALAR [Suspect]
     Active Substance: ATLANTIC SALMON OIL
     Route: 065
  43. ZANTAC [Suspect]
     Active Substance: RANITIDINE HYDROCHLORIDE
     Route: 065
  44. CYANOCOBALAMIN. [Suspect]
     Active Substance: CYANOCOBALAMIN
     Route: 065
  45. FISH OIL [Suspect]
     Active Substance: FISH OIL
     Route: 065
  46. FOSAMAX [Suspect]
     Active Substance: ALENDRONATE SODIUM
     Route: 065
  47. FUROSEMIDE. [Suspect]
     Active Substance: FUROSEMIDE
     Route: 065
  48. VITAMIN B COMPLEX [Suspect]
     Active Substance: CYANOCOBALAMIN\DEXPANTHENOL\NIACINAMIDE\PYRIDOXINE HYDROCHLORIDE\RIBOFLAVIN 5^-PHOSPHATE SODIUM\THIAMINE HYDROCHLORIDE\VITAMIN B COMPLEX
     Route: 065
  49. WARFARIN SODIUM. [Suspect]
     Active Substance: WARFARIN SODIUM
     Route: 065

REACTIONS (4)
  - Somnolence [Recovered/Resolved]
  - Coma [Recovered/Resolved]
  - Gastrooesophageal reflux disease [Recovered/Resolved]
  - Pneumonia aspiration [Recovered/Resolved]
